FAERS Safety Report 5378853-2 (Version None)
Quarter: 2007Q3

REPORT INFORMATION
  Report Type: 
  Country: None (occurrence: None)
  Receive Date: 20070705
  Receipt Date: 20070629
  Transmission Date: 20080115
  Serious: Yes (Hospitalization)
  Sender: FDA-Public Use
  Company Number: FR-ELI_LILLY_AND_COMPANY-FR200706006482

PATIENT
  Age: 50 Year
  Sex: Male

DRUGS (1)
  1. ALIMTA [Suspect]
     Indication: LUNG ADENOCARCINOMA STAGE IV

REACTIONS (6)
  - ANOREXIA [None]
  - ASTHENIA [None]
  - COUGH [None]
  - FEBRILE BONE MARROW APLASIA [None]
  - RENAL FAILURE [None]
  - SUBCLAVIAN VEIN THROMBOSIS [None]
